FAERS Safety Report 5984702-1 (Version None)
Quarter: 2008Q4

REPORT INFORMATION
  Report Type: 
  Country: None (occurrence: None)
  Receive Date: 20081208
  Receipt Date: 20070214
  Transmission Date: 20090506
  Serious: Yes (Other)
  Sender: FDA-Public Use
  Company Number: US-BAXTER-2007BH001207

PATIENT
  Age: 18 Year
  Sex: Male
  Weight: 86 kg

DRUGS (6)
  1. GAMMAGARD LIQUID [Suspect]
     Indication: BRUTON'S AGAMMAGLOBULINAEMIA
     Route: 042
     Dates: start: 20070127, end: 20070127
  2. GAMMAGARD LIQUID [Suspect]
     Indication: PRIMARY IMMUNODEFICIENCY SYNDROME
     Route: 042
     Dates: start: 20070127, end: 20070127
  3. GAMMAGARD LIQUID [Suspect]
     Route: 042
     Dates: start: 20070127, end: 20070127
  4. GAMMAGARD LIQUID [Suspect]
     Route: 042
     Dates: start: 20070127, end: 20070127
  5. GAMMAGARD LIQUID [Suspect]
     Route: 042
  6. GAMMAGARD LIQUID [Suspect]
     Route: 042

REACTIONS (3)
  - ANAPHYLACTOID REACTION [None]
  - DRUG INTOLERANCE [None]
  - URTICARIA [None]
